FAERS Safety Report 6495274-X (Version None)
Quarter: 2009Q4

REPORT INFORMATION
  Report Type: 
  Country: None (occurrence: None)
  Receive Date: 20091214
  Receipt Date: 20090523
  Transmission Date: 20100525
  Serious: Yes (Other)
  Sender: FDA-Public Use
  Company Number: US-BRISTOL-MYERS SQUIBB COMPANY-14632780

PATIENT
  Age: 38 Year
  Sex: Male
  Weight: 104 kg

DRUGS (8)
  1. ABILIFY [Suspect]
     Indication: SCHIZOPHRENIA
     Route: 048
     Dates: start: 20090406
  2. ALPRAZOLAM [Concomitant]
  3. CELEXA [Concomitant]
  4. FLUNISOLIDE [Concomitant]
  5. LORATADINE [Concomitant]
  6. OMEPRAZOLE [Concomitant]
  7. AMBIEN [Concomitant]
  8. ALPRAZOLAM [Suspect]

REACTIONS (2)
  - CONVULSION [None]
  - HALLUCINATION, AUDITORY [None]
